FAERS Safety Report 11873407 (Version 1)
Quarter: 2015Q4

REPORT INFORMATION
  Report Type: Report from Study
  Country: US (occurrence: US)
  Receive Date: 20151228
  Receipt Date: 20151228
  Transmission Date: 20160305
  Serious: Yes (Hospitalization)
  Sender: FDA-Public Use
  Company Number: US-ACTELION-A-NJ2015-126996

PATIENT
  Age: 72 Year
  Sex: Male

DRUGS (3)
  1. TREPROSTINIL DIOLAMIN [Concomitant]
     Active Substance: TREPROSTINIL DIOLAMINE
  2. MACITENTAN [Suspect]
     Active Substance: MACITENTAN
     Indication: PULMONARY ARTERIAL HYPERTENSION
     Dosage: 10 MG, QD
     Route: 048
     Dates: start: 20131217
  3. ADCIRCA [Concomitant]
     Active Substance: TADALAFIL

REACTIONS (7)
  - Aspiration pleural cavity [Unknown]
  - Cardiac ablation [Unknown]
  - Oedema [Unknown]
  - Diarrhoea [Unknown]
  - Cardiac flutter [Unknown]
  - Pleural effusion [Unknown]
  - Dyspnoea [Unknown]
